FAERS Safety Report 5672819-0 (Version None)
Quarter: 2008Q1

REPORT INFORMATION
  Report Type: 
  Country: None (occurrence: None)
  Receive Date: 20080319
  Receipt Date: 20070413
  Transmission Date: 20080703
  Serious: No
  Sender: FDA-Public Use
  Company Number: US-KINGPHARMUSA00001-K200700478

PATIENT

DRUGS (2)
  1. ALTACE [Suspect]
     Indication: BLOOD PRESSURE FLUCTUATION
     Dosage: 2.5 MG, SINGLE
     Route: 048
     Dates: start: 20070413, end: 20070413
  2. PROTONIX   /01263201/ [Concomitant]
     Dosage: 40 MG, UNK

REACTIONS (1)
  - SOMNOLENCE [None]
